FAERS Safety Report 13570025 (Version 1)
Quarter: 2017Q2

REPORT INFORMATION
  Report Type: Spontaneous
  Country: IE (occurrence: IE)
  Receive Date: 20170522
  Receipt Date: 20170522
  Transmission Date: 20170830
  Serious: Yes (Disabling, Other)
  Sender: FDA-Public Use
  Company Number: PHHY2017IE069911

PATIENT
  Age: 77 Year
  Sex: Female

DRUGS (3)
  1. VENTOLIN [Concomitant]
     Active Substance: ALBUTEROL SULFATE
     Indication: PRODUCT USED FOR UNKNOWN INDICATION
     Dosage: 2 DF, QD
     Route: 065
  2. AMOCLAV [Suspect]
     Active Substance: AMOXICILLIN\CLAVULANATE POTASSIUM
     Indication: URINARY TRACT INFECTION
  3. AMOCLAV [Suspect]
     Active Substance: AMOXICILLIN\CLAVULANATE POTASSIUM
     Indication: LOWER RESPIRATORY TRACT INFECTION
     Dosage: 625 MG, TID
     Route: 065
     Dates: start: 20170302, end: 20170311

REACTIONS (5)
  - Paraesthesia [Recovering/Resolving]
  - Presyncope [Recovering/Resolving]
  - Asthenia [Recovered/Resolved]
  - Malaise [Recovering/Resolving]
  - Eye disorder [Recovered/Resolved]

NARRATIVE: CASE EVENT DATE: 20170304
